FAERS Safety Report 12728408 (Version 2)
Quarter: 2016Q3

REPORT INFORMATION
  Report Type: Spontaneous
  Country: NL (occurrence: NL)
  Receive Date: 20160909
  Receipt Date: 20160919
  Transmission Date: 20161109
  Serious: Yes (Other)
  Sender: FDA-Public Use
  Company Number: NL-TEVA-690433ISR

PATIENT
  Age: 65 Year
  Sex: Male

DRUGS (1)
  1. FLUVASTATIN [Suspect]
     Active Substance: FLUVASTATIN SODIUM
     Route: 065

REACTIONS (2)
  - Muscle rupture [Unknown]
  - Tendon rupture [Unknown]
